FAERS Safety Report 8043293-4 (Version None)
Quarter: 2012Q1

REPORT INFORMATION
  Report Type: 
  Country: None (occurrence: None)
  Receive Date: 20120112
  Receipt Date: 20120105
  Transmission Date: 20120608
  Serious: Yes (Hospitalization)
  Sender: FDA-Public Use
  Company Number: US-GLAXOSMITHKLINE-A0942200A

PATIENT
  Age: 74 Year
  Sex: Male
  Weight: 105 kg

DRUGS (1)
  1. AVANDARYL [Suspect]
     Indication: DIABETES MELLITUS
     Route: 048
     Dates: start: 20060330, end: 20100201

REACTIONS (5)
  - ATRIOVENTRICULAR BLOCK SECOND DEGREE [None]
  - DYSPNOEA [None]
  - ATRIOVENTRICULAR BLOCK [None]
  - FATIGUE [None]
  - HIP FRACTURE [None]
